FAERS Safety Report 13693487 (Version 1)
Quarter: 2017Q2

REPORT INFORMATION
  Report Type: Spontaneous
  Country: US (occurrence: US)
  Receive Date: 20170626
  Receipt Date: 20170626
  Transmission Date: 20170830
  Serious: Yes (Hospitalization, Disabling)
  Sender: FDA-Public Use
  Company Number: None

PATIENT
  Age: 51 Year
  Sex: Female
  Weight: 77.4 kg

DRUGS (4)
  1. ALPRAZOLAM. [Suspect]
     Active Substance: ALPRAZOLAM
     Indication: INSOMNIA
     Dosage: ?          OTHER STRENGTH:MG;QUANTITY:1 TABLET(S);?
     Route: 048
  2. LEXAPRO [Concomitant]
     Active Substance: ESCITALOPRAM OXALATE
  3. LORAZEPAM. [Suspect]
     Active Substance: LORAZEPAM
     Indication: INSOMNIA
     Route: 048
  4. THRYROID [Concomitant]

REACTIONS (24)
  - Confusional state [None]
  - Insomnia [None]
  - Withdrawal syndrome [None]
  - Ocular discomfort [None]
  - Dry eye [None]
  - Depression [None]
  - Back pain [None]
  - Hypoaesthesia [None]
  - Paraesthesia [None]
  - Abdominal pain upper [None]
  - Dyspnoea [None]
  - Myalgia [None]
  - Fatigue [None]
  - Joint stiffness [None]
  - Amnesia [None]
  - Agoraphobia [None]
  - Drug tolerance [None]
  - Asthenia [None]
  - Hypotension [None]
  - Vision blurred [None]
  - Constipation [None]
  - Nausea [None]
  - Suicidal ideation [None]
  - Unevaluable event [None]

NARRATIVE: CASE EVENT DATE: 20060401
